FAERS Safety Report 5342887-4 (Version None)
Quarter: 2007Q2

REPORT INFORMATION
  Report Type: 
  Country: None (occurrence: None)
  Receive Date: 20070416
  Receipt Date: 20070215
  Transmission Date: 20071010
  Serious: No
  Sender: FDA-Public Use
  Company Number: 2007SP000512

PATIENT
  Age: 81 Year
  Sex: Female
  Weight: 86.1834 kg

DRUGS (8)
  1. LUNESTA [Suspect]
     Indication: INSOMNIA
     Dosage: 2 MG;HS;ORAL
     Route: 048
     Dates: start: 20070201
  2. PIOGLITAZONE [Concomitant]
  3. GLIPIZIDE [Concomitant]
  4. LISINOPRIL [Concomitant]
  5. OXYBUTYNIN CHLORIDE [Concomitant]
  6. FISH OIL [Concomitant]
  7. LUTEIN [Concomitant]
  8. ASPIRIN [Concomitant]

REACTIONS (1)
  - GOUT [None]
